FAERS Safety Report 9199112 (Version 1)
Quarter: 2013Q1

REPORT INFORMATION
  Report Type: Spontaneous
  Country: GB (occurrence: None)
  Receive Date: 20130326
  Receipt Date: 20130326
  Transmission Date: 20140127
  Serious: Yes (Other)
  Sender: FDA-Public Use
  Company Number: 2013-04756

PATIENT
  Age: 29 Year
  Sex: Male

DRUGS (1)
  1. CITALOPRAM HYDROBROMIDE (UNKNOWN) (CITALOPRAM HYDROBROMIDE) UNK, UNKUNK [Suspect]
     Indication: PRODUCT USED FOR UNKNOWN INDICATION
     Route: 048

REACTIONS (5)
  - Palpitations [None]
  - Pollakiuria [None]
  - Genital swelling [None]
  - Constipation [None]
  - Drug ineffective [None]
